FAERS Safety Report 8328574-9 (Version None)
Quarter: 2012Q2

REPORT INFORMATION
  Report Type: 
  Country: None (occurrence: None)
  Receive Date: 20120502
  Receipt Date: 20120425
  Transmission Date: 20120825
  Serious: No
  Sender: FDA-Public Use
  Company Number: US-PFIZER INC-2012070377

PATIENT
  Age: 30 Month
  Sex: Female
  Weight: 13.152 kg

DRUGS (1)
  1. CHILDREN'S ADVIL [Suspect]
     Indication: EAR DISORDER
     Dosage: DAILY
     Route: 048
     Dates: start: 20120318

REACTIONS (2)
  - PSYCHOMOTOR HYPERACTIVITY [None]
  - FEELING ABNORMAL [None]
